FAERS Safety Report 7149257-7 (Version None)
Quarter: 2010Q4

REPORT INFORMATION
  Report Type: 
  Country: None (occurrence: None)
  Receive Date: 20101209
  Receipt Date: 20101130
  Transmission Date: 20110411
  Serious: Yes (Hospitalization, Other)
  Sender: FDA-Public Use
  Company Number: GXBR2010US02012

PATIENT
  Sex: Male
  Weight: 45.351 kg

DRUGS (3)
  1. OMNITROPE [Suspect]
     Indication: GROWTH HORMONE DEFICIENCY
     Dosage: 2 MG, QD
     Dates: start: 20100927
  2. VERAMYST [Concomitant]
     Indication: SINUS CONGESTION
     Dosage: 27.5 UG, QD
     Route: 045
     Dates: start: 20100101
  3. FENTANYL [Concomitant]
     Indication: SURGERY
     Dosage: UNK
     Dates: start: 20101122

REACTIONS (5)
  - COGNITIVE DISORDER [None]
  - OXYGEN SATURATION DECREASED [None]
  - SOMNOLENCE [None]
  - TYMPANIC MEMBRANE PERFORATION [None]
  - TYMPANOPLASTY [None]
